FAERS Safety Report 11958491 (Version 1)
Quarter: 2016Q1

REPORT INFORMATION
  Report Type: Spontaneous
  Country: GB (occurrence: GB)
  Receive Date: 20160126
  Receipt Date: 20160126
  Transmission Date: 20160526
  Serious: Yes (Disabling, Other)
  Sender: FDA-Public Use
  Company Number: GB-009507513-1601GBR007842

PATIENT
  Age: 74 Year
  Sex: Female
  Weight: 58 kg

DRUGS (1)
  1. SITAGLIPTIN PHOSPHATE [Suspect]
     Active Substance: SITAGLIPTIN PHOSPHATE
     Indication: TYPE 2 DIABETES MELLITUS
     Dosage: UNK; 100 MG
     Route: 048
     Dates: start: 20141209, end: 20151202

REACTIONS (3)
  - Diarrhoea [Recovered/Resolved]
  - Abnormal loss of weight [Recovered/Resolved]
  - Abdominal pain [Recovered/Resolved]

NARRATIVE: CASE EVENT DATE: 20141210
